FAERS Safety Report 5781451-X (Version None)
Quarter: 2008Q2

REPORT INFORMATION
  Report Type: 
  Country: None (occurrence: None)
  Receive Date: 20080619
  Receipt Date: 20080606
  Transmission Date: 20081010
  Serious: Yes (Other)
  Sender: FDA-Public Use
  Company Number: PERC20080049

PATIENT
  Sex: Female

DRUGS (1)
  1. PERCOCET [Suspect]

REACTIONS (2)
  - DRUG INEFFECTIVE [None]
  - HEPATIC ENZYME ABNORMAL [None]
